FAERS Safety Report 7747761-1 (Version None)
Quarter: 2011Q3

REPORT INFORMATION
  Report Type: 
  Country: None (occurrence: None)
  Receive Date: 20110913
  Receipt Date: 20110902
  Transmission Date: 20111222
  Serious: Yes (Death)
  Sender: FDA-Public Use
  Company Number: ES-ROCHE-758584

PATIENT
  Sex: Female
  Weight: 64 kg

DRUGS (8)
  1. PREDNISONE [Concomitant]
     Dates: end: 20110204
  2. FOLIC ACID [Concomitant]
     Dates: start: 20081216, end: 20110204
  3. PLACEBO [Suspect]
     Indication: RHEUMATOID ARTHRITIS
     Dosage: LAST DOSE PRIOR TO SAE: 04 FEB 2011, PERMANENTLY DISCONTINUED
     Route: 048
     Dates: start: 20090803, end: 20110204
  4. CALCIUM CARBONATE [Concomitant]
     Dates: start: 19970515, end: 20110204
  5. ENALAPRIL MALEATE [Concomitant]
     Dates: start: 20100705, end: 20110204
  6. TOCILIZUMAB [Suspect]
     Indication: RHEUMATOID ARTHRITIS
     Dosage: LAST DOSE PRIOR TO SAE: 18 JAN 2011, DOSAGE FORM REPORTED AS IV, PERMANENTLY DISCONTINUED
     Route: 042
     Dates: start: 20090803, end: 20110204
  7. COLECALCIFEROL [Concomitant]
     Dates: start: 19970515, end: 20110204
  8. STRONTIUM RANELATE [Concomitant]
     Dates: start: 20080805, end: 20110204

REACTIONS (1)
  - SUDDEN DEATH [None]
